FAERS Safety Report 9366626 (Version 2)
Quarter: 2013Q3

REPORT INFORMATION
  Report Type: Spontaneous
  Country: US (occurrence: US)
  Receive Date: 20130625
  Receipt Date: 20130816
  Transmission Date: 20140515
  Serious: Yes (Hospitalization)
  Sender: FDA-Public Use
  Company Number: US-BRISTOL-MYERS SQUIBB COMPANY-19018472

PATIENT
  Age: 63 Year
  Sex: Female
  Weight: 89.34 kg

DRUGS (6)
  1. BYDUREON [Suspect]
     Indication: TYPE 2 DIABETES MELLITUS
     Route: 058
     Dates: start: 20130329, end: 20130514
  2. TICAGRELOR [Concomitant]
  3. AMARYL [Concomitant]
  4. GLUCOPHAGE [Concomitant]
  5. ASA [Concomitant]
  6. SYNTHROID [Concomitant]

REACTIONS (6)
  - Coronary artery occlusion [Recovering/Resolving]
  - Abdominal pain upper [Recovered/Resolved]
  - Constipation [Recovered/Resolved]
  - Injection site mass [Not Recovered/Not Resolved]
  - Injection site pain [Recovering/Resolving]
  - Injection site nodule [Recovering/Resolving]
